FAERS Safety Report 14376451 (Version 1)
Quarter: 2018Q1

REPORT INFORMATION
  Report Type: Spontaneous
  Country: US (occurrence: US)
  Receive Date: 20180110
  Receipt Date: 20180110
  Transmission Date: 20180509
  Serious: No
  Sender: FDA-Public Use
  Company Number: None

PATIENT
  Age: 27 Year
  Sex: Female

DRUGS (5)
  1. COMPLETE FORMULATION SOFTGEL MULTIVITAMIN [Suspect]
     Active Substance: VITAMINS
     Indication: CYSTIC FIBROSIS
     Dosage: DOSE - 2 SOFTGELS
     Route: 048
     Dates: start: 20150831
  2. APAP/CODEINE [Concomitant]
     Active Substance: ACETAMINOPHEN\CODEINE PHOSPHATE
  3. EASIVE PLUS [Concomitant]
  4. PREDNISONE. [Concomitant]
     Active Substance: PREDNISONE
  5. VITAMIN D3 [Concomitant]
     Active Substance: CHOLECALCIFEROL

REACTIONS (1)
  - Rash [None]

NARRATIVE: CASE EVENT DATE: 20150831
